FAERS Safety Report 15313784 (Version 3)
Quarter: 2018Q4

REPORT INFORMATION
  Report Type: Spontaneous
  Country: CH (occurrence: CH)
  Receive Date: 20180824
  Receipt Date: 20180921
  Transmission Date: 20190204
  Serious: Yes (Other)
  Sender: FDA-Public Use
  Company Number: CH-TEVA-2018-CH-947442

PATIENT
  Sex: Male

DRUGS (1)
  1. CO-AMOXI-MEPHA I.V. 2200 [Suspect]
     Active Substance: AMOXICILLIN\CLAVULANIC ACID
     Indication: OSTEOMYELITIS
     Route: 042
     Dates: start: 201808

REACTIONS (8)
  - Headache [Unknown]
  - Cognitive disorder [Not Recovered/Not Resolved]
  - Nausea [Unknown]
  - Gait disturbance [Unknown]
  - Meningitis aseptic [Unknown]
  - Vomiting [Unknown]
  - Personality change [Unknown]
  - Pyrexia [Unknown]
